FAERS Safety Report 6092696-6 (Version None)
Quarter: 2009Q1

REPORT INFORMATION
  Report Type: 
  Country: None (occurrence: None)
  Receive Date: 20090219
  Receipt Date: 20081204
  Transmission Date: 20090719
  Serious: No
  Sender: FDA-Public Use
  Company Number: WAES 0812USA01609

PATIENT
  Age: 56 Year
  Sex: Female
  Weight: 68.0396 kg

DRUGS (7)
  1. JANUVIA [Suspect]
     Indication: TYPE 2 DIABETES MELLITUS
     Dosage: 100 MG/DAILY/PO
     Route: 048
     Dates: start: 20081130
  2. ARISTOPAN [Concomitant]
  3. DEMEROL [Concomitant]
  4. KLONOPIN [Concomitant]
  5. NEURONTIN [Concomitant]
  6. VISTARIL [Concomitant]
  7. LIDOCAINE [Concomitant]

REACTIONS (2)
  - OROPHARYNGEAL PAIN [None]
  - RHINORRHOEA [None]
